FAERS Safety Report 12967648 (Version 1)
Quarter: 2016Q4

REPORT INFORMATION
  Report Type: Spontaneous
  Country: JP (occurrence: JP)
  Receive Date: 20161123
  Receipt Date: 20161123
  Transmission Date: 20170207
  Serious: Yes (Hospitalization)
  Sender: FDA-Public Use
  Company Number: PHJP2016JP019149

PATIENT
  Age: 64 Year
  Sex: Male
  Weight: 64 kg

DRUGS (4)
  1. FUROSEMIDE. [Concomitant]
     Active Substance: FUROSEMIDE
     Indication: PLEURAL EFFUSION
     Dosage: 80 MG, QD
     Route: 048
     Dates: start: 20160225, end: 20160906
  2. SPIRONOLACTONE. [Concomitant]
     Active Substance: SPIRONOLACTONE
     Indication: PLEURAL EFFUSION
     Dosage: 50 MG, QD
     Route: 048
     Dates: start: 20160202, end: 20160906
  3. TASIGNA [Suspect]
     Active Substance: NILOTINIB
     Indication: CHRONIC MYELOID LEUKAEMIA
     Dosage: 300 MG, BID
     Route: 048
     Dates: start: 20160512, end: 20160624
  4. FEBURIC [Concomitant]
     Active Substance: FEBUXOSTAT
     Indication: PLEURAL EFFUSION
     Dosage: 20 MG, QD
     Route: 048
     Dates: start: 20160407, end: 20160906

REACTIONS (2)
  - Malaise [Recovering/Resolving]
  - Hepatic function abnormal [Recovering/Resolving]

NARRATIVE: CASE EVENT DATE: 20160623
